FAERS Safety Report 8589960-5 (Version None)
Quarter: 2012Q3

REPORT INFORMATION
  Report Type: 
  Country: None (occurrence: None)
  Receive Date: 20120813
  Receipt Date: 19940111
  Transmission Date: 20120928
  Serious: Yes (Hospitalization)
  Sender: FDA-Public Use
  Company Number: US-ROCHE-1099388

PATIENT
  Sex: Male

DRUGS (4)
  1. NITRO S.L. [Concomitant]
  2. HEPARIN [Concomitant]
     Dosage: 5000 IVP
  3. ACTIVASE [Suspect]
     Indication: PERICARDITIS
  4. ACTIVASE [Suspect]
     Indication: ATRIAL FIBRILLATION

REACTIONS (2)
  - PAIN [None]
  - GINGIVAL BLEEDING [None]
